FAERS Safety Report 15866530 (Version 3)
Quarter: 2019Q4

REPORT INFORMATION
  Report Type: Spontaneous
  Country: US (occurrence: US)
  Receive Date: 20190125
  Receipt Date: 20191024
  Transmission Date: 20200122
  Serious: No
  Sender: FDA-Public Use
  Company Number: US-009507513-1901USA009286

PATIENT
  Age: 66 Year
  Sex: Male

DRUGS (4)
  1. FOSCARNET SODIUM. [Concomitant]
     Active Substance: FOSCARNET SODIUM
     Indication: CYTOMEGALOVIRUS CHORIORETINITIS
     Dosage: 2.4MG/0.1ML
  2. GLOBULIN, IMMUNE [Concomitant]
     Active Substance: HUMAN IMMUNOGLOBULIN G
     Indication: CYTOMEGALOVIRUS CHORIORETINITIS
  3. TACROLIMUS. [Concomitant]
     Active Substance: TACROLIMUS
  4. PREVYMIS [Suspect]
     Active Substance: LETERMOVIR
     Indication: CYTOMEGALOVIRUS CHORIORETINITIS
     Dosage: 720 MG DAILY
     Route: 048

REACTIONS (1)
  - Off label use [Unknown]
